FAERS Safety Report 25983317 (Version 1)
Quarter: 2025Q4

REPORT INFORMATION
  Report Type: Spontaneous
  Country: US (occurrence: None)
  Receive Date: 20251030
  Receipt Date: 20251030
  Transmission Date: 20260118
  Serious: No
  Sender: FDA-CTU
  Company Number: None

PATIENT
  Sex: Female

DRUGS (2)
  1. TOLVAPTAN [Suspect]
     Active Substance: TOLVAPTAN
     Indication: Cardiac failure
     Dosage: OTHER FREQUENCY : 2 TABLETS BY MOUTH;?
     Route: 048
     Dates: start: 20240916
  2. TOLVAPTAN [Concomitant]
     Active Substance: TOLVAPTAN

REACTIONS (1)
  - Blood sodium decreased [None]
